FAERS Safety Report 8427350-6 (Version None)
Quarter: 2012Q2

REPORT INFORMATION
  Report Type: 
  Country: None (occurrence: None)
  Receive Date: 20120323
  Receipt Date: 20110404
  Transmission Date: 20120825
  Serious: Yes (Hospitalization)
  Sender: FDA-Public Use
  Company Number: 163-21880-11021785

PATIENT
  Age: 71 Year
  Sex: Male

DRUGS (15)
  1. ZANTAC [Concomitant]
  2. LISINOPRIL [Concomitant]
  3. NITROSTAT [Concomitant]
  4. ASPIRIN [Concomitant]
  5. HYDRALAZINE HCL [Concomitant]
  6. ACETAMINOPHEN W/ CODEINE [Concomitant]
  7. ISOSORBIDE MONONITRATE [Concomitant]
  8. CLOTRIMAZOLE-BETAMETHASONE (CLOTRIMAZOLE) [Concomitant]
  9. REVLIMID [Suspect]
     Indication: MULTIPLE MYELOMA
     Dosage: 10 MG, DAILY X 21 DAYS/OFF 7 DAYS, PO
     Route: 048
     Dates: start: 20100806
  10. ACETAMINOPHEN [Concomitant]
  11. MULTIVITAMIN [Concomitant]
  12. TERAZOSIN HCL [Concomitant]
  13. GLUCOSAMINE CHONDROITIN (GLUCOSAMINE W/CHONDROITIN SULFATE) [Concomitant]
  14. PLAVIX [Concomitant]
  15. CARVEDILOL [Concomitant]

REACTIONS (3)
  - DRY SKIN [None]
  - PRURITUS [None]
  - EPISTAXIS [None]
